FAERS Safety Report 7403560-1 (Version None)
Quarter: 2011Q2

REPORT INFORMATION
  Report Type: 
  Country: None (occurrence: None)
  Receive Date: 20110408
  Receipt Date: 20110330
  Transmission Date: 20111010
  Serious: Yes (Other)
  Sender: FDA-Public Use
  Company Number: US-PERRIGO-11US002729

PATIENT
  Sex: Female
  Weight: 112.47 kg

DRUGS (3)
  1. ACETAMINOPHEN 500MG 975 [Suspect]
     Indication: PAIN IN EXTREMITY
     Dosage: 1000 MG, 1-2 TIMES QD
     Route: 048
     Dates: start: 20100101, end: 20110101
  2. ACETAMINOPHEN 500MG 975 [Suspect]
     Dosage: 1500 MG, EVERY 2-6 HOURS QD PRN
     Route: 048
     Dates: start: 20110201, end: 20110329
  3. ACETAMINOPHEN 500MG 975 [Suspect]
     Dosage: 1000 MG, QID
     Route: 048
     Dates: start: 20110101, end: 20110201

REACTIONS (16)
  - HYPOAESTHESIA [None]
  - PELVIC PAIN [None]
  - DRUG EFFECT DECREASED [None]
  - OEDEMA PERIPHERAL [None]
  - GLOSSODYNIA [None]
  - DRY SKIN [None]
  - GAIT DISTURBANCE [None]
  - ARTHRALGIA [None]
  - DRY MOUTH [None]
  - OVERDOSE [None]
  - DYSGEUSIA [None]
  - INSOMNIA [None]
  - MUSCLE SPASMS [None]
  - PAIN IN EXTREMITY [None]
  - PRURITUS [None]
  - INCORRECT DRUG ADMINISTRATION DURATION [None]
